FAERS Safety Report 4526385-3 (Version None)
Quarter: 2004Q4

REPORT INFORMATION
  Report Type: 
  Country: None (occurrence: None)
  Receive Date: 20041214
  Receipt Date: 20040823
  Transmission Date: 20050328
  Serious: Yes (Disabling, Other)
  Sender: FDA-Public Use
  Company Number: FR-BRISTOL-MYERS SQUIBB COMPANY-12679718

PATIENT
  Age: 45 Year
  Sex: Female
  Weight: 65 kg

DRUGS (3)
  1. REYATAZ [Suspect]
     Indication: HIV INFECTION
     Route: 048
     Dates: start: 20040330, end: 20041021
  2. NORVIR [Concomitant]
     Indication: HIV INFECTION
     Dates: start: 20030601
  3. COMBIVIR [Concomitant]
     Indication: HIV INFECTION
     Dates: start: 20030601

REACTIONS (2)
  - BLOOD LACTIC ACID INCREASED [None]
  - MUSCLE CRAMP [None]
